FAERS Safety Report 9361933 (Version 1)
Quarter: 2013Q2

REPORT INFORMATION
  Report Type: Spontaneous
  Country: FR (occurrence: FR)
  Receive Date: 20130621
  Receipt Date: 20130621
  Transmission Date: 20140414
  Serious: Yes (Hospitalization)
  Sender: FDA-Public Use
  Company Number: FR-ASTRAZENECA-2013SE46340

PATIENT
  Age: 23368 Day
  Sex: Female

DRUGS (5)
  1. XEROQUEL [Suspect]
     Route: 048
     Dates: start: 20120601, end: 20120706
  2. L THYROXINE SERB [Concomitant]
     Route: 048
  3. SEROPLEX [Concomitant]
     Route: 048
  4. TRANXENE [Concomitant]
     Route: 048
     Dates: end: 20120710
  5. TEMESTA [Concomitant]
     Route: 048
     Dates: end: 20120710

REACTIONS (8)
  - Anaemia [Unknown]
  - Lymphopenia [Unknown]
  - Agitation [Unknown]
  - Pneumonia aspiration [Unknown]
  - Faecaloma [Unknown]
  - Leukopenia [Unknown]
  - Intestinal obstruction [Recovered/Resolved]
  - Neutropenia [Unknown]
